FAERS Safety Report 7311370-9 (Version None)
Quarter: 2011Q1

REPORT INFORMATION
  Report Type: 
  Country: None (occurrence: None)
  Receive Date: 20110224
  Receipt Date: 20110221
  Transmission Date: 20110831
  Serious: Yes (Hospitalization)
  Sender: FDA-Public Use
  Company Number: US-ABBOTT-11P-163-0706791-00

PATIENT
  Sex: Male
  Weight: 57.204 kg

DRUGS (11)
  1. MULTI-VITAMIN [Concomitant]
     Indication: VITAMIN SUPPLEMENTATION
  2. ALLOPURINOL [Concomitant]
     Indication: GOUT
  3. COREG [Concomitant]
     Indication: PRODUCT USED FOR UNKNOWN INDICATION
  4. AZULFIDINE [Suspect]
     Indication: CROHN'S DISEASE
  5. HUMIRA [Suspect]
     Indication: CROHN'S DISEASE
     Dates: start: 20090401, end: 20100801
  6. CIPRO [Concomitant]
     Indication: CROHN'S DISEASE
  7. PEPCID [Concomitant]
     Indication: DYSPEPSIA
  8. ENTOCORT EC [Concomitant]
     Indication: CROHN'S DISEASE
  9. FOLIC ACID [Concomitant]
     Indication: PRODUCT USED FOR UNKNOWN INDICATION
  10. CALCIUM PLUS VITAMIN D [Concomitant]
     Indication: SUPPLEMENTATION THERAPY
  11. DIGOXIN [Concomitant]
     Indication: HYPERTENSION

REACTIONS (5)
  - RENAL FAILURE [None]
  - FATIGUE [None]
  - PNEUMONIA [None]
  - URINE OUTPUT DECREASED [None]
  - HERPES ZOSTER [None]
